FAERS Safety Report 6426697-2 (Version None)
Quarter: 2009Q4

REPORT INFORMATION
  Report Type: 
  Country: None (occurrence: None)
  Receive Date: 20091030
  Receipt Date: 20091016
  Transmission Date: 20100525
  Serious: Yes (Other)
  Sender: FDA-Public Use
  Company Number: URSO-2009-119

PATIENT
  Sex: Male

DRUGS (6)
  1. URSODEOXYCHOLIC ACID (UDCA) [Suspect]
     Indication: HEPATITIS C
     Dosage: 300 MG
     Dates: start: 20060101, end: 20060101
  2. URSODEOXYCHOLIC ACID (UDCA) [Suspect]
     Indication: HEPATITIS C
     Dosage: 300 MG
     Dates: start: 20060101, end: 20060101
  3. GLYCERON (AMMONIUM GLYCYRRHIZATE) [Suspect]
     Dosage: 300MG QD; 600MG QD
     Dates: start: 20060101, end: 20060101
  4. GLYCERON (AMMONIUM GLYCYRRHIZATE) [Suspect]
     Dosage: 300MG QD; 600MG QD
     Dates: start: 20060101
  5. STRONGER NEO-MINOPHAGEN C (AMINOACETIC ACID, CYSTEINE, GLYCYRRHIZIC AC [Suspect]
     Dosage: 100ML IV ONCE A WEEK (1XW) INTRAVENOUS INFUSION
     Route: 042
     Dates: start: 20060101
  6. LEVOTHYROXINE SODIUM [Concomitant]

REACTIONS (9)
  - ANAEMIA [None]
  - BLOOD THYROID STIMULATING HORMONE INCREASED [None]
  - CHRONIC HEPATITIS [None]
  - DRUG EFFECT DECREASED [None]
  - HEPATIC FIBROSIS [None]
  - INTERSTITIAL LUNG DISEASE [None]
  - THROMBOCYTOPENIA [None]
  - THYROXINE FREE DECREASED [None]
  - TRI-IODOTHYRONINE FREE DECREASED [None]
